FAERS Safety Report 8152101 (Version 3)
Quarter: 2013Q4

REPORT INFORMATION
  Report Type: Spontaneous
  Country: US (occurrence: US)
  Receive Date: 20110922
  Receipt Date: 20131015
  Transmission Date: 20140711
  Serious: Yes (Hospitalization, Other)
  Sender: FDA-Public Use
  Company Number: US-ASTRAZENECA-2011SE12564

PATIENT
  Age: 33 Year
  Sex: Female

DRUGS (13)
  1. SEROQUEL [Suspect]
     Route: 048
     Dates: start: 20041220
  2. SEROQUEL [Suspect]
     Route: 048
     Dates: start: 20070319
  3. CITALOPRAM [Concomitant]
     Dates: start: 20070418
  4. HYDROXYZINE [Concomitant]
     Dates: start: 20080616
  5. FAMOTIDINE [Concomitant]
     Dates: start: 20080616
  6. LISINOPRIL [Concomitant]
     Dates: start: 20080616
  7. SINGULAIR [Concomitant]
     Dates: start: 20080823
  8. HALDOL [Concomitant]
     Dates: start: 20041220
  9. CELEBREX [Concomitant]
     Dates: start: 20041220
  10. NEXIUM [Concomitant]
     Dates: start: 20041220
  11. ABILIFY [Concomitant]
     Dates: start: 20041220
  12. RISPERDAL [Concomitant]
     Dosage: AT BED TIME
     Dates: start: 20041220
  13. TOPAMAX [Concomitant]
     Dates: start: 20041220

REACTIONS (3)
  - Diabetic coma [Unknown]
  - Pancreatitis [Unknown]
  - Type 2 diabetes mellitus [Unknown]
